FAERS Safety Report 16576821 (Version 1)
Quarter: 2019Q3

REPORT INFORMATION
  Report Type: Spontaneous
  Country: US (occurrence: US)
  Receive Date: 20190603
  Receipt Date: 20190603
  Transmission Date: 20191004
  Serious: No
  Sender: FDA-Public Use
  Company Number: None

PATIENT
  Age: 64 Year
  Sex: Male
  Weight: 41.73 kg

DRUGS (1)
  1. IOHEXOL [Suspect]
     Active Substance: IOHEXOL
     Indication: COMPUTERISED TOMOGRAM
     Dates: start: 20190530, end: 20190530

REACTIONS (7)
  - Throat tightness [None]
  - Pruritus [None]
  - Rash [None]
  - Contrast media reaction [None]
  - Vomiting [None]
  - Nausea [None]
  - Urticaria [None]

NARRATIVE: CASE EVENT DATE: 20190530
